FAERS Safety Report 8572037-2 (Version None)
Quarter: 2012Q3

REPORT INFORMATION
  Report Type: 
  Country: None (occurrence: None)
  Receive Date: 20120806
  Receipt Date: 20120723
  Transmission Date: 20120928
  Serious: Yes (Hospitalization)
  Sender: FDA-Public Use
  Company Number: AT-MYLANLABS-2012S1015351

PATIENT
  Age: 22 Year
  Sex: Female

DRUGS (3)
  1. FLUOXETINE HCL [Interacting]
     Route: 065
  2. VENLAFAXINE [Suspect]
     Route: 065
  3. ARIPIPRAZOLE [Concomitant]
     Route: 065

REACTIONS (3)
  - ANTIDEPRESSANT DRUG LEVEL ABOVE THERAPEUTIC [None]
  - SEROTONIN SYNDROME [None]
  - DRUG INTERACTION [None]
